FAERS Safety Report 22064793 (Version 1)
Quarter: 2023Q1

REPORT INFORMATION
  Report Type: Spontaneous
  Country: FR (occurrence: FR)
  Receive Date: 20230306
  Receipt Date: 20230306
  Transmission Date: 20230418
  Serious: Yes (Death)
  Sender: FDA-Public Use
  Company Number: None

PATIENT
  Age: 50 Year
  Sex: Male
  Weight: 45 kg

DRUGS (12)
  1. KEYTRUDA [Suspect]
     Active Substance: PEMBROLIZUMAB
     Indication: Lung adenocarcinoma
     Dosage: C1, 200MG
     Route: 042
     Dates: start: 20230201, end: 20230201
  2. AMITRIPTYLINE HYDROCHLORIDE [Concomitant]
     Active Substance: AMITRIPTYLINE HYDROCHLORIDE
  3. PREDNISOLONE [Concomitant]
     Active Substance: PREDNISOLONE
  4. NICOPATCH [Concomitant]
     Active Substance: NICOTINE
  5. KEPPRA [Concomitant]
     Active Substance: LEVETIRACETAM
  6. LANSOPRAZOLE [Concomitant]
     Active Substance: LANSOPRAZOLE
  7. TRANEXAMIC ACID [Concomitant]
     Active Substance: TRANEXAMIC ACID
  8. ALPRAZOLAM [Concomitant]
     Active Substance: ALPRAZOLAM
  9. MORPHINE [Concomitant]
     Active Substance: MORPHINE
  10. ACETAMINOPHEN [Concomitant]
     Active Substance: ACETAMINOPHEN
  11. LOVENOX [Concomitant]
     Active Substance: ENOXAPARIN SODIUM
  12. RIVOTRIL [Concomitant]
     Active Substance: CLONAZEPAM

REACTIONS (1)
  - Ileal perforation [Fatal]

NARRATIVE: CASE EVENT DATE: 20230206
